FAERS Safety Report 9832940 (Version 1)
Quarter: 2014Q1

REPORT INFORMATION
  Report Type: Spontaneous
  Country: US (occurrence: US)
  Receive Date: 20140121
  Receipt Date: 20140121
  Transmission Date: 20141002
  Serious: Yes (Hospitalization)
  Sender: FDA-Public Use
  Company Number: PHHY2014US004113

PATIENT
  Age: 44 Year
  Sex: Male

DRUGS (19)
  1. DOXAZOSIN [Suspect]
     Dosage: 8 MG, AT BEDTIME
  2. TAMSULOSIN [Interacting]
     Dosage: 0.4 MG, DAILY
  3. QUETIAPINE [Interacting]
     Dosage: 100 MG, EVERY EVENING
  4. TESTOSTERONE CYPIONATE [Suspect]
     Indication: HYPOGONADISM
     Dosage: 200 MG, EVERY 14 DAYS
     Route: 030
  5. BOCEPREVIR [Interacting]
     Dosage: 800 MG, TID
  6. EFAVIRENZ [Concomitant]
     Dosage: 600 MG, UNK
  7. EMTRICITABINE [Concomitant]
     Dosage: 200 MG, UNK
  8. TENOFOVIR DISOPROXIL [Concomitant]
     Dosage: 200 MG, DAILY
     Route: 048
  9. PEGINTERFERON ALFA-2B [Concomitant]
     Dosage: 120 UG, EVERY 7 DAYS
     Route: 058
  10. RIBAVIRIN [Concomitant]
     Dosage: 1000 MG, DAILY
  11. ONDANSETRON [Concomitant]
     Indication: NAUSEA
     Dosage: 4 MG, Q6H
  12. ESOMEPRAZOLE [Concomitant]
     Dosage: 40 MG, DAILY
  13. LITHIUM [Concomitant]
     Dosage: 1200 MG, AT BEDTIME
  14. LOSARTAN [Concomitant]
     Dosage: 50 MG, DAILY
  15. NAPROXEN [Concomitant]
     Indication: PAIN
     Dosage: 500 MG, BID
  16. ACETAMINOPHEN W/OXYCODONE [Concomitant]
     Indication: PAIN
     Dosage: 1 DF, Q6H
  17. LOPERAMIDE [Concomitant]
     Indication: DIARRHOEA
     Dosage: 2 MG, PRN
  18. CODEINE W/GUAIFENESIN [Concomitant]
     Indication: COUGH
  19. CYCLOBENZAPRINE [Concomitant]
     Indication: MUSCLE SPASMS
     Dosage: 10 MG, Q8H

REACTIONS (2)
  - Priapism [Recovered/Resolved]
  - Drug interaction [Unknown]
